FAERS Safety Report 18697344 (Version 2)
Quarter: 2021Q1

REPORT INFORMATION
  Report Type: Spontaneous
  Country: US (occurrence: US)
  Receive Date: 20210105
  Receipt Date: 20210108
  Transmission Date: 20210419
  Serious: No
  Sender: FDA-Public Use
  Company Number: NVSC2020US345716

PATIENT
  Sex: Female

DRUGS (2)
  1. TAFINLAR [Suspect]
     Active Substance: DABRAFENIB MESYLATE
     Indication: MALIGNANT NEOPLASM OF CONJUNCTIVA
     Dosage: 150 MG, BID
     Route: 048
     Dates: start: 20201021
  2. MEKINIST [Suspect]
     Active Substance: TRAMETINIB DIMETHYL SULFOXIDE
     Indication: MALIGNANT NEOPLASM OF CONJUNCTIVA
     Dosage: 2 MG, QD
     Route: 048
     Dates: start: 20201021

REACTIONS (5)
  - Pruritus [Unknown]
  - Product use in unapproved indication [Unknown]
  - Urticaria [Unknown]
  - Rash [Unknown]
  - Visual impairment [Unknown]
